FAERS Safety Report 9304000 (Version 1)
Quarter: 2013Q2

REPORT INFORMATION
  Report Type: Spontaneous
  Country: PL (occurrence: PL)
  Receive Date: 20130522
  Receipt Date: 20130522
  Transmission Date: 20140414
  Serious: Yes (Other)
  Sender: FDA-Public Use
  Company Number: PHHY2013PL050157

PATIENT
  Age: 31 Year
  Sex: Female

DRUGS (1)
  1. AZITROLEK [Suspect]
     Indication: UPPER RESPIRATORY TRACT INFECTION
     Dosage: 500 MG, QD
     Route: 048
     Dates: start: 20121018, end: 20121018

REACTIONS (4)
  - Hypotension [Unknown]
  - Urticaria [Unknown]
  - Syncope [Unknown]
  - Respiratory rate decreased [Unknown]
